FAERS Safety Report 22811753 (Version 3)
Quarter: 2024Q2

REPORT INFORMATION
  Report Type: Report from Study
  Country: US (occurrence: US)
  Receive Date: 20230810
  Receipt Date: 20240617
  Transmission Date: 20240716
  Serious: Yes (Other)
  Sender: FDA-Public Use
  Company Number: US-ACADIA PHARMACEUTICALS INC.-ACA-2023-TRF-003012

PATIENT
  Age: 18 Year
  Sex: Female

DRUGS (5)
  1. DAYBUE [Suspect]
     Active Substance: TROFINETIDE
     Indication: Rett syndrome
     Dosage: 35 MILLILITER, BID
     Dates: start: 20230419
  2. ZONISADE [Concomitant]
     Active Substance: ZONISAMIDE
  3. VITAMINS [Concomitant]
     Active Substance: VITAMINS
     Dosage: GUMMIES
  4. MIRENA [Concomitant]
     Active Substance: LEVONORGESTREL
  5. DIASTAT ACUDIAL [Concomitant]
     Active Substance: DIAZEPAM

REACTIONS (2)
  - Seizure [Recovered/Resolved]
  - Diarrhoea [Not Recovered/Not Resolved]

NARRATIVE: CASE EVENT DATE: 20240515
